FAERS Safety Report 16658801 (Version 1)
Quarter: 2019Q3

REPORT INFORMATION
  Report Type: Spontaneous
  Country: US (occurrence: US)
  Receive Date: 20190801
  Receipt Date: 20190801
  Transmission Date: 20191004
  Serious: No
  Sender: FDA-Public Use
  Company Number: US-BAUSCH-BL-2019-021538

PATIENT
  Age: 72 Year
  Sex: Female

DRUGS (3)
  1. XIFAXAN [Suspect]
     Active Substance: RIFAXIMIN
     Indication: IRRITABLE BOWEL SYNDROME
     Dosage: STARTED ON THE EVENING
     Route: 048
     Dates: start: 20190719, end: 20190719
  2. XIFAXAN [Suspect]
     Active Substance: RIFAXIMIN
     Indication: GASTROINTESTINAL BACTERIAL OVERGROWTH
     Route: 048
     Dates: start: 20190720, end: 20190721
  3. XIFAXAN [Suspect]
     Active Substance: RIFAXIMIN
     Dosage: TOOK ONLY ONE TABLET
     Route: 048
     Dates: start: 20190722, end: 20190722

REACTIONS (4)
  - Gastric disorder [Not Recovered/Not Resolved]
  - Throat irritation [Recovering/Resolving]
  - Dyspnoea [Recovering/Resolving]
  - Nausea [Recovering/Resolving]

NARRATIVE: CASE EVENT DATE: 201907
